FAERS Safety Report 6077587-9 (Version None)
Quarter: 2009Q1

REPORT INFORMATION
  Report Type: 
  Country: None (occurrence: None)
  Receive Date: 20090213
  Receipt Date: 20090204
  Transmission Date: 20090719
  Serious: Yes (Other)
  Sender: FDA-Public Use
  Company Number: US-ELI_LILLY_AND_COMPANY-US200902000842

PATIENT
  Sex: Male

DRUGS (6)
  1. BYETTA [Suspect]
     Indication: TYPE 2 DIABETES MELLITUS
     Dosage: 5 UG, UNKNOWN
  2. BYETTA [Suspect]
     Dosage: 10 UG, UNKNOWN
     Dates: end: 20090101
  3. HUMALOG [Concomitant]
     Indication: TYPE 2 DIABETES MELLITUS
  4. LANTUS [Concomitant]
     Indication: TYPE 2 DIABETES MELLITUS
  5. TRICOR [Concomitant]
  6. LIPITOR [Concomitant]

REACTIONS (1)
  - PANCREATITIS [None]
